FAERS Safety Report 5060534-6 (Version None)
Quarter: 2006Q3

REPORT INFORMATION
  Report Type: 
  Country: None (occurrence: None)
  Receive Date: 20060719
  Receipt Date: 20060719
  Transmission Date: 20061208
  Serious: Yes (Death)
  Sender: FDA-Public Use
  Company Number: None

PATIENT
  Sex: Male
  Weight: 104 kg

DRUGS (2)
  1. ERBITUX [Suspect]
     Indication: METASTASES TO LIVER
     Dosage: 900 MG   X1 DOSE   IV BOLUS  (DURATION: PT ONLY RECEIVED ONE DOSE)
     Route: 040
  2. ERBITUX [Suspect]
     Indication: RECTAL CANCER METASTATIC
     Dosage: 900 MG   X1 DOSE   IV BOLUS  (DURATION: PT ONLY RECEIVED ONE DOSE)
     Route: 040

REACTIONS (2)
  - CARDIO-RESPIRATORY ARREST [None]
  - LOSS OF CONSCIOUSNESS [None]
